FAERS Safety Report 18655011 (Version 1)
Quarter: 2020Q4

REPORT INFORMATION
  Report Type: Spontaneous
  Country: US (occurrence: US)
  Receive Date: 20201223
  Receipt Date: 20201223
  Transmission Date: 20210114
  Serious: Yes (Life-Threatening)
  Sender: FDA-Public Use
  Company Number: None

PATIENT
  Age: 55 Year
  Sex: Female
  Weight: 94 kg

DRUGS (5)
  1. DEXAMETHASONE. [Concomitant]
     Active Substance: DEXAMETHASONE
     Dates: start: 20201120, end: 20201130
  2. ENOXAPARIN [Concomitant]
     Active Substance: ENOXAPARIN
     Dates: start: 20201121, end: 20201203
  3. LOSARTAN. [Concomitant]
     Active Substance: LOSARTAN
     Dates: start: 20201123, end: 20201126
  4. REMDESIVIR. [Suspect]
     Active Substance: REMDESIVIR
     Indication: COVID-19
     Route: 042
  5. FUROSEMIDE. [Concomitant]
     Active Substance: FUROSEMIDE
     Dates: start: 20201124, end: 20201126

REACTIONS (6)
  - Hypotension [None]
  - Cardio-respiratory arrest [None]
  - Angioedema [None]
  - Pneumomediastinum [None]
  - Erythema [None]
  - Swelling [None]

NARRATIVE: CASE EVENT DATE: 20201127
